FAERS Safety Report 5856513-9 (Version None)
Quarter: 2008Q3

REPORT INFORMATION
  Report Type: 
  Country: None (occurrence: None)
  Receive Date: 20080825
  Receipt Date: 20080714
  Transmission Date: 20090109
  Serious: No
  Sender: FDA-Public Use
  Company Number: A0737485A

PATIENT
  Age: 62 Year
  Sex: Male

DRUGS (5)
  1. VERAMYST [Suspect]
     Dosage: 1SPR TWICE PER DAY
     Route: 045
     Dates: start: 20080620
  2. FLUTICASONE PROPIONATE [Suspect]
     Route: 065
  3. FLOVENT [Concomitant]
  4. BUSPAR [Concomitant]
  5. FEXOFENADINE [Concomitant]

REACTIONS (4)
  - ILL-DEFINED DISORDER [None]
  - MEDICATION RESIDUE [None]
  - NASAL DISCOMFORT [None]
  - THROAT IRRITATION [None]
